FAERS Safety Report 6674704-4 (Version None)
Quarter: 2010Q2

REPORT INFORMATION
  Report Type: 
  Country: None (occurrence: None)
  Receive Date: 20100409
  Receipt Date: 20100329
  Transmission Date: 20101027
  Serious: Yes (Other)
  Sender: FDA-Public Use
  Company Number: US-PFIZER INC-2010040098

PATIENT
  Sex: Female
  Weight: 42.63 kg

DRUGS (3)
  1. CHANTIX [Suspect]
     Indication: SMOKING CESSATION THERAPY
     Dosage: 0.5 MG, 1X/DAY
     Route: 048
     Dates: start: 20060101
  2. CHANTIX [Suspect]
     Dosage: UNK
     Route: 048
     Dates: end: 20070701
  3. XANAX [Concomitant]
     Dosage: 1 MG, 2X/DAY
     Route: 048

REACTIONS (2)
  - NERVE INJURY [None]
  - WEIGHT DECREASED [None]
